FAERS Safety Report 10179144 (Version 2)
Quarter: 2020Q1

REPORT INFORMATION
  Report Type: Spontaneous
  Country: GR (occurrence: GR)
  Receive Date: 20140519
  Receipt Date: 20200228
  Transmission Date: 20200409
  Serious: Yes (Hospitalization, Other)
  Sender: FDA-Public Use
  Company Number: PHHY2014GR057795

PATIENT
  Age: 73 Year
  Sex: Male

DRUGS (4)
  1. BETAMETHASONE. [Suspect]
     Active Substance: BETAMETHASONE
     Indication: PSORIASIS
     Dosage: 250 G MONTHLY OF EACH CREAMBETAMETHASONE VALERATE 0.1%
     Route: 061
  2. PANTHENOL [Suspect]
     Active Substance: PANTHENOL
     Indication: PSORIASIS
     Dosage: UNK,ONCE DAILY FOR A MONTH
     Route: 061
  3. BUDESONIDE. [Suspect]
     Active Substance: BUDESONIDE
     Indication: PSORIASIS
     Dosage: 400 G, MONTHLY BUDESONIDE 0.025% CREAM DILUTED 1/1 WITH A PANTHENOL BASE CREAM
     Route: 065
  4. CLOBETASOL [Suspect]
     Active Substance: CLOBETASOL
     Indication: PSORIASIS
     Dosage: 250 G, MONTHLY
     Route: 061

REACTIONS (10)
  - Human herpesvirus 8 infection [Recovering/Resolving]
  - Skin lesion [Recovering/Resolving]
  - Kaposi^s sarcoma [Recovering/Resolving]
  - Lymphoedema [Recovering/Resolving]
  - Intentional product misuse [Unknown]
  - Rash papular [Recovering/Resolving]
  - Drug abuse [Unknown]
  - Overdose [Unknown]
  - Drug interaction [Unknown]
  - Pulmonary mass [Recovering/Resolving]
